FAERS Safety Report 16340839 (Version 3)
Quarter: 2019Q2

REPORT INFORMATION
  Report Type: Spontaneous
  Country: FR (occurrence: FR)
  Receive Date: 20190522
  Receipt Date: 20190621
  Transmission Date: 20190711
  Serious: Yes (Other)
  Sender: FDA-Public Use
  Company Number: FR-CELLTRION INC.-2019FR021255

PATIENT

DRUGS (4)
  1. METHOTREXATE. [Concomitant]
     Active Substance: METHOTREXATE
     Dosage: UNK, (7.5 MG/WEEK IN 2 PATIENTS AND 10 MG/WEEK IN 12 PATIENTS)
     Route: 065
  2. PREDNISONE. [Concomitant]
     Active Substance: PREDNISONE
     Dosage: 7 MG/DAY
     Route: 065
  3. PREDNISONE. [Concomitant]
     Active Substance: PREDNISONE
     Dosage: 7 MG/KG, UNK
     Route: 065
  4. INFLIXIMAB (UNKNOWN) [Suspect]
     Active Substance: INFLIXIMAB
     Indication: NEUROSARCOIDOSIS
     Dosage: 5 MG/KG, INTERVAL VARIED FROM 4 TO 8 WEEKS
     Route: 042

REACTIONS (5)
  - Infusion related reaction [Unknown]
  - Urticaria [Unknown]
  - Off label use [Unknown]
  - Product use in unapproved indication [Unknown]
  - Infection [Unknown]
